FAERS Safety Report 9935520 (Version 1)
Quarter: 2014Q1

REPORT INFORMATION
  Report Type: Spontaneous
  Country: US (occurrence: US)
  Receive Date: 20140228
  Receipt Date: 20140228
  Transmission Date: 20141002
  Serious: No
  Sender: FDA-Public Use
  Company Number: US-PFIZER INC-2014058520

PATIENT
  Age: 54 Year
  Sex: Male

DRUGS (2)
  1. NEURONTIN [Suspect]
     Indication: NECK INJURY
     Dosage: 600 MG, 3X/DAY
     Dates: end: 2013
  2. NEURONTIN [Suspect]
     Indication: SPINAL DISORDER

REACTIONS (2)
  - Sedation [Unknown]
  - Euphoric mood [Unknown]
